FAERS Safety Report 20351519 (Version 3)
Quarter: 2022Q3

REPORT INFORMATION
  Report Type: Report from Study
  Country: US (occurrence: US)
  Receive Date: 20220119
  Receipt Date: 20220901
  Transmission Date: 20221027
  Serious: No
  Sender: FDA-Public Use
  Company Number: US-NOVARTISTESTPH-NVSC2021US218426

PATIENT
  Sex: Male

DRUGS (1)
  1. ENTRESTO [Suspect]
     Active Substance: SACUBITRIL\VALSARTAN
     Indication: Cardiac failure
     Dosage: 50 MG, BID (24/26 MG)
     Route: 048
     Dates: start: 202108

REACTIONS (6)
  - Somnolence [Unknown]
  - Depression [Unknown]
  - Fatigue [Unknown]
  - Arthritis [Not Recovered/Not Resolved]
  - Back pain [Unknown]
  - Gait inability [Unknown]
